FAERS Safety Report 9518197 (Version 2)
Quarter: 2013Q4

REPORT INFORMATION
  Report Type: Spontaneous
  Country: CN (occurrence: CN)
  Receive Date: 20130912
  Receipt Date: 20131011
  Transmission Date: 20140711
  Serious: Yes (Hospitalization)
  Sender: FDA-Public Use
  Company Number: CN-JNJFOC-20130902557

PATIENT
  Age: 20 Year
  Sex: Male

DRUGS (1)
  1. DUROGESIC D-TRANS [Suspect]
     Indication: CANCER PAIN
     Dosage: 8.4MG
     Route: 062
     Dates: start: 20130801

REACTIONS (5)
  - Condition aggravated [Unknown]
  - Wrong technique in drug usage process [Unknown]
  - Product packaging quantity issue [Unknown]
  - Product adhesion issue [Unknown]
  - Inadequate analgesia [Unknown]
